FAERS Safety Report 19483330 (Version 1)
Quarter: 2021Q3

REPORT INFORMATION
  Report Type: Spontaneous
  Country: DE (occurrence: CN)
  Receive Date: 20210701
  Receipt Date: 20210701
  Transmission Date: 20211014
  Serious: Yes (Other)
  Sender: FDA-Public Use
  Company Number: CN-ELI_LILLY_AND_COMPANY-CN202106014958

PATIENT
  Age: 66 Year
  Sex: Male
  Weight: 77 kg

DRUGS (5)
  1. GIMERACIL [Suspect]
     Active Substance: GIMERACIL
     Indication: RECTAL CANCER
     Dosage: 90.8 MG, UNK
     Route: 048
     Dates: start: 20210303, end: 20210303
  2. OTERACIL [Suspect]
     Active Substance: OTERACIL
     Indication: RECTAL CANCER
     Dosage: 90.8 MG, UNKNOWN
     Route: 048
     Dates: start: 20210303, end: 20210303
  3. TEGAFUR [Suspect]
     Active Substance: TEGAFUR
     Indication: RECTAL CANCER
     Dosage: 90.8 MG, BID
     Route: 048
     Dates: start: 20210303, end: 20210303
  4. ERBITUX [Suspect]
     Active Substance: CETUXIMAB
     Indication: RECTAL CANCER
     Dosage: 800 MG, DAILY
     Route: 041
     Dates: start: 20210303, end: 20210303
  5. IRINOTECAN HYDROCHLORIDE. [Suspect]
     Active Substance: IRINOTECAN HYDROCHLORIDE
     Indication: RECTAL CANCER
     Dosage: 200 MG, DAILY
     Route: 041
     Dates: start: 20210303, end: 20210303

REACTIONS (1)
  - Myelosuppression [Recovering/Resolving]

NARRATIVE: CASE EVENT DATE: 20210312
